FAERS Safety Report 9295023 (Version 1)
Quarter: 2013Q2

REPORT INFORMATION
  Report Type: Spontaneous
  Country: US (occurrence: US)
  Receive Date: 20130517
  Receipt Date: 20130517
  Transmission Date: 20140414
  Serious: No
  Sender: FDA-Public Use
  Company Number: US-PFIZER INC-2013150085

PATIENT
  Age: 69 Year
  Sex: Female
  Weight: 77 kg

DRUGS (2)
  1. AMLODIPINE BESILATE [Suspect]
     Indication: HYPERTENSION
     Dosage: 10 MG, 1X/DAY
     Route: 048
  2. LORAZEPAM [Concomitant]
     Dosage: UNK MG, AS NEEDED

REACTIONS (6)
  - Cardiac disorder [Unknown]
  - Heart rate increased [Unknown]
  - Feeling abnormal [Unknown]
  - Tension headache [Unknown]
  - Nausea [Unknown]
  - Malaise [Unknown]
